FAERS Safety Report 7532406-6 (Version None)
Quarter: 2011Q2

REPORT INFORMATION
  Report Type: 
  Country: None (occurrence: None)
  Receive Date: 20110607
  Receipt Date: 20110607
  Transmission Date: 20111010
  Serious: No
  Sender: FDA-Public Use
  Company Number: None

PATIENT
  Sex: Female
  Weight: 65.9 kg

DRUGS (12)
  1. PANTOPRAZOLE [Concomitant]
  2. BORTEZOMIB [Suspect]
     Dosage: 2.2 MG ONE TIME IV
     Route: 042
  3. ENOXAPARIN [Concomitant]
  4. OXYCODONE HCL [Concomitant]
  5. VIT B6 [Concomitant]
  6. KEPPRA [Concomitant]
  7. REVLIMID [Suspect]
     Indication: MULTIPLE MYELOMA
     Dosage: 15MG ONCE DAILY ORAL
     Route: 048
     Dates: start: 20110531, end: 20110602
  8. VALACYCLOVIR [Concomitant]
  9. M.V.I. [Concomitant]
  10. ATOVAQUONE [Concomitant]
  11. SENOKOT [Concomitant]
  12. PCN [Concomitant]

REACTIONS (1)
  - NEUTROPHIL COUNT DECREASED [None]
